FAERS Safety Report 4909460-0 (Version None)
Quarter: 2006Q1

REPORT INFORMATION
  Report Type: 
  Country: None (occurrence: None)
  Receive Date: 20060213
  Receipt Date: 20050825
  Transmission Date: 20060701
  Serious: Yes (Hospitalization, Disabling, Other)
  Sender: FDA-Public Use
  Company Number: US-MERCK-0508USA04197

PATIENT
  Age: 73 Year
  Sex: Female

DRUGS (7)
  1. VIOXX [Suspect]
     Route: 048
  2. EVISTA [Concomitant]
     Route: 065
  3. PLAVIX [Concomitant]
     Indication: MIGRAINE WITH AURA
     Route: 065
  4. METOPROLOL [Concomitant]
     Route: 065
  5. TIAZAC [Concomitant]
     Route: 065
  6. VITAMINS (UNSPECIFIED) [Concomitant]
     Route: 065
  7. CALCIUM (UNSPECIFIED) [Concomitant]
     Route: 065

REACTIONS (10)
  - ACUTE MYOCARDIAL INFARCTION [None]
  - ANGINA PECTORIS [None]
  - ANXIETY [None]
  - BLOOD PRESSURE INCREASED [None]
  - CARDIOVASCULAR DISORDER [None]
  - CORONARY ARTERY STENOSIS [None]
  - MENTAL DISORDER [None]
  - NAUSEA [None]
  - NEPHRECTASIA [None]
  - PAIN [None]
